FAERS Safety Report 4552401-9 (Version None)
Quarter: 2005Q1

REPORT INFORMATION
  Report Type: 
  Country: None (occurrence: None)
  Receive Date: 20050112
  Receipt Date: 20050112
  Transmission Date: 20050727
  Serious: No
  Sender: FDA-Public Use
  Company Number: None

PATIENT
  Age: 77 Year
  Sex: Female
  Weight: 69.8539 kg

DRUGS (3)
  1. ISOSORBIDE MONONITRATE [Suspect]
     Indication: ANGINA PECTORIS
     Dosage: 3QD TOTAL DOSE IS 90 MG PER DAY  NEW GENERIC STARTED ON 10/01/2004
     Dates: start: 20041001
  2. DIOVAN [Concomitant]
  3. HYDROCHLOROTHIAZIDE [Concomitant]

REACTIONS (3)
  - ANGINA PECTORIS [None]
  - CONDITION AGGRAVATED [None]
  - STOOL ANALYSIS ABNORMAL [None]
